FAERS Safety Report 10692842 (Version 1)
Quarter: 2015Q1

REPORT INFORMATION
  Report Type: Spontaneous
  Country: IT (occurrence: IT)
  Receive Date: 20150106
  Receipt Date: 20150106
  Transmission Date: 20150720
  Serious: Yes (Hospitalization)
  Sender: FDA-Public Use
  Company Number: IT-TEVA-532074ISR

PATIENT
  Age: 61 Year
  Sex: Male

DRUGS (7)
  1. CYMBALTA [Concomitant]
     Active Substance: DULOXETINE HYDROCHLORIDE
     Route: 048
  2. LASITONE 25 MG + 37 MG [Concomitant]
     Route: 048
  3. BISOPROLOLO EMIFUMARATO [Concomitant]
     Active Substance: BISOPROLOL FUMARATE
     Route: 048
  4. ATORVASTATINA CALCIO TRIIDRATO [Concomitant]
     Route: 048
  5. LANSOPRAZOLO [Concomitant]
     Active Substance: LANSOPRAZOLE
     Route: 048
  6. LAMOTRIGINA [Concomitant]
     Active Substance: LAMOTRIGINE
     Route: 048
  7. CARBOLITHIUM 300 MG [Suspect]
     Active Substance: LITHIUM CARBONATE
     Indication: DEPRESSION
     Dosage: 600 MILLIGRAM DAILY;
     Route: 048
     Dates: start: 20140101, end: 20141207

REACTIONS (4)
  - Tremor [Recovering/Resolving]
  - Toxicity to various agents [Recovering/Resolving]
  - Disorientation [Recovering/Resolving]
  - Aphasia [Recovering/Resolving]

NARRATIVE: CASE EVENT DATE: 20141207
